FAERS Safety Report 6151309-5 (Version None)
Quarter: 2009Q2

REPORT INFORMATION
  Report Type: 
  Country: None (occurrence: None)
  Receive Date: 20090410
  Receipt Date: 20090401
  Transmission Date: 20091009
  Serious: Yes (Hospitalization)
  Sender: FDA-Public Use
  Company Number: PHHO2009SE04352

PATIENT
  Sex: Male

DRUGS (12)
  1. CYCLOSPORINE [Suspect]
     Indication: RENAL TRANSPLANT
     Dosage: 100 MG / DAY
     Route: 048
     Dates: start: 20031126
  2. MYCOPHENOLATE MOFETIL [Suspect]
     Indication: RENAL TRANSPLANT
     Dosage: 1 G, BID
     Route: 048
     Dates: start: 20031126
  3. METHYLPREDNISOLONE 4MG TAB [Suspect]
     Indication: RENAL TRANSPLANT
     Dosage: 500 MG
     Route: 042
     Dates: start: 20031126
  4. DACLIZUMAB [Suspect]
     Indication: RENAL TRANSPLANT
     Dosage: 150 MG
     Route: 042
     Dates: start: 20031126, end: 20040121
  5. DACLIZUMAB [Suspect]
     Dosage: 75 MG / 2 WEEKS
     Route: 042
     Dates: start: 20031211
  6. PREDNISOLONE [Suspect]
     Indication: RENAL TRANSPLANT
     Dosage: 10 MG / DAY
     Route: 048
     Dates: start: 20031126
  7. ATENOLOL [Concomitant]
  8. FELODIPINE [Concomitant]
  9. CEFOTAXIME [Concomitant]
  10. VALGANCICLOVIR HCL [Concomitant]
  11. PANTOPRAZOLE [Concomitant]
  12. PENTAMIDINE [Concomitant]

REACTIONS (1)
  - CEREBROVASCULAR ACCIDENT [None]
